FAERS Safety Report 25112705 (Version 2)
Quarter: 2025Q2

REPORT INFORMATION
  Report Type: Spontaneous
  Country: GB (occurrence: GB)
  Receive Date: 20250324
  Receipt Date: 20250509
  Transmission Date: 20250717
  Serious: Yes (Death, Other)
  Sender: PFIZER
  Company Number: GB-PFIZER INC-202500060915

PATIENT
  Age: 2 Year
  Sex: Male
  Weight: 14.4 kg

DRUGS (6)
  1. MYLOTARG [Suspect]
     Active Substance: GEMTUZUMAB OZOGAMICIN
     Indication: Acute myeloid leukaemia
     Route: 042
     Dates: start: 20250214, end: 20250217
  2. HYDROCORTISONE SODIUM SUCCINATE [Suspect]
     Active Substance: HYDROCORTISONE SODIUM SUCCINATE
     Indication: Acute myeloid leukaemia
     Dosage: 10 MG, 2X/WEEK (10 MG, TWICE A WEEK A TOTAL OF 6 DOSES)
     Route: 037
     Dates: start: 20250211, end: 20250226
  3. METHOTREXATE SODIUM [Suspect]
     Active Substance: METHOTREXATE SODIUM
     Indication: Acute myeloid leukaemia
     Dosage: 10 MG, 2X/WEEK (10 MG, TWICE A WEEK A TOTAL OF 6 DOSES)
     Route: 037
     Dates: start: 20250211, end: 20250226
  4. CYTARABINE [Suspect]
     Active Substance: CYTARABINE
     Indication: Acute myeloid leukaemia
     Dosage: 1 DF, 2X/DAY 10 DAYS, 20 DOSES
     Route: 037
     Dates: start: 20250211, end: 20250226
  5. MITOXANTRONE [Suspect]
     Active Substance: MITOXANTRONE HYDROCHLORIDE
     Indication: Acute myeloid leukaemia
     Dosage: 7.6 MG, 1X/DAY
     Route: 042
     Dates: start: 20250211, end: 20250214
  6. DEXRAZOXANE [Concomitant]
     Active Substance: DEXRAZOXANE
     Dosage: 300 MG, DAILY

REACTIONS (2)
  - Multiple organ dysfunction syndrome [Fatal]
  - Venoocclusive disease [Fatal]

NARRATIVE: CASE EVENT DATE: 20250303
